FAERS Safety Report 12232163 (Version 2)
Quarter: 2016Q2

REPORT INFORMATION
  Report Type: Spontaneous
  Country: JP (occurrence: JP)
  Receive Date: 20160401
  Receipt Date: 20160420
  Transmission Date: 20160815
  Serious: No
  Sender: FDA-Public Use
  Company Number: JP-GILEAD-2016-0205918

PATIENT
  Age: 77 Year
  Sex: Female

DRUGS (6)
  1. REBAMIPIDE [Concomitant]
     Active Substance: REBAMIPIDE
     Dosage: UNK
  2. MAGMITT [Concomitant]
     Active Substance: MAGNESIUM OXIDE
     Dosage: UNK
  3. REBAMIPIDE [Concomitant]
     Active Substance: REBAMIPIDE
     Dosage: UNK
  4. BARACLUDE [Concomitant]
     Active Substance: ENTECAVIR
     Dosage: UNK
  5. TENOFOVIR DISOPROXIL FUMARATE. [Suspect]
     Active Substance: TENOFOVIR DISOPROXIL FUMARATE
     Indication: CHRONIC HEPATITIS B
     Dosage: 300 MG, QD
     Route: 048
     Dates: start: 20160310
  6. CELECOX [Concomitant]
     Active Substance: CELECOXIB
     Dosage: UNK

REACTIONS (1)
  - Chromaturia [Recovering/Resolving]

NARRATIVE: CASE EVENT DATE: 20160322
